FAERS Safety Report 5294939-5 (Version None)
Quarter: 2007Q2

REPORT INFORMATION
  Report Type: 
  Country: None (occurrence: None)
  Receive Date: 20070412
  Receipt Date: 20060404
  Transmission Date: 20071010
  Serious: Yes (Other)
  Sender: FDA-Public Use
  Company Number: 200611830EU

PATIENT
  Age: 18 Year
  Sex: Female

DRUGS (1)
  1. NICORETTE [Suspect]
     Dosage: 4MG SEE DOSAGE TEXT
     Route: 002
     Dates: start: 20060301, end: 20060301

REACTIONS (3)
  - ANAPHYLACTIC SHOCK [None]
  - DYSPNOEA [None]
  - URTICARIA [None]
